FAERS Safety Report 7073227-0 (Version None)
Quarter: 2010Q4

REPORT INFORMATION
  Report Type: 
  Country: None (occurrence: None)
  Receive Date: 20101029
  Receipt Date: 20100512
  Transmission Date: 20110411
  Serious: No
  Sender: FDA-Public Use
  Company Number: A0859390A

PATIENT
  Sex: Female

DRUGS (9)
  1. ADVAIR DISKUS 100/50 [Suspect]
     Indication: CHRONIC OBSTRUCTIVE PULMONARY DISEASE
     Route: 055
  2. XOPENEX [Concomitant]
  3. UNSPECIFIED MEDICATION [Concomitant]
  4. LITHIUM [Concomitant]
  5. HYDROCHLORTHIAZID [Concomitant]
  6. SPIRONOLACTONE [Concomitant]
  7. VITAMIN D [Concomitant]
  8. LACTULOSE [Concomitant]
  9. NEXIUM [Concomitant]

REACTIONS (3)
  - DYSPNOEA [None]
  - FEAR [None]
  - INSOMNIA [None]
